FAERS Safety Report 5745724-9 (Version None)
Quarter: 2008Q2

REPORT INFORMATION
  Report Type: 
  Country: None (occurrence: None)
  Receive Date: 20080519
  Receipt Date: 20080313
  Transmission Date: 20081010
  Serious: No
  Sender: FDA-Public Use
  Company Number: TPA2008A00320

PATIENT
  Age: 45 Year
  Sex: Female

DRUGS (1)
  1. ROZEREM [Suspect]
     Indication: INSOMNIA
     Dosage: 8 MG, PER ORAL ; 48 MG, 1 IN 1 D, PER ORAL
     Route: 048

REACTIONS (2)
  - DRUG INEFFECTIVE [None]
  - OVERDOSE [None]
